FAERS Safety Report 23181354 (Version 1)
Quarter: 2023Q4

REPORT INFORMATION
  Report Type: Spontaneous
  Country: KR (occurrence: KR)
  Receive Date: 20231114
  Receipt Date: 20231114
  Transmission Date: 20240110
  Serious: Yes (Hospitalization, Other)
  Sender: FDA-Public Use
  Company Number: None

PATIENT
  Age: 66 Year
  Sex: Male
  Weight: 62 kg

DRUGS (5)
  1. CLOPIDOGREL BISULFATE [Suspect]
     Active Substance: CLOPIDOGREL BISULFATE
     Indication: Arteriosclerosis coronary artery
     Dosage: 300 MG, QD
     Route: 048
     Dates: start: 20180819, end: 20180819
  2. HEPARIN SODIUM [Concomitant]
     Active Substance: HEPARIN SODIUM
     Indication: Arteriosclerosis
     Route: 042
  3. ROSUVASTATIN CALCIUM [Concomitant]
     Active Substance: ROSUVASTATIN CALCIUM
     Indication: Arteriosclerosis
     Route: 042
  4. BISOPROLOL FUMARATE [Concomitant]
     Active Substance: BISOPROLOL FUMARATE
     Indication: Arteriosclerosis
     Route: 042
  5. CANDESARTAN CILEXETIL [Concomitant]
     Active Substance: CANDESARTAN CILEXETIL
     Indication: Arteriosclerosis
     Route: 042

REACTIONS (1)
  - Angina unstable [Recovered/Resolved]

NARRATIVE: CASE EVENT DATE: 20181205
